FAERS Safety Report 8379350-2 (Version None)
Quarter: 2012Q1

REPORT INFORMATION
  Report Type: 
  Country: None (occurrence: None)
  Receive Date: 20120323
  Receipt Date: 20110420
  Transmission Date: 20120608
  Serious: Yes (Other)
  Sender: FDA-Public Use
  Company Number: 163-21880-11032052

PATIENT
  Age: 56 Year
  Sex: Male
  Weight: 102.2 kg

DRUGS (4)
  1. REVLIMID [Suspect]
     Indication: METASTASIS
     Dosage: 10 MG, 1 IN 1 D, PO 10 MG, 1 IN 1 D, PO 15 MG, DAILY FOR 14 DAYS, OFF 7, PO
     Route: 048
     Dates: start: 20101006
  2. REVLIMID [Suspect]
     Indication: METASTASIS
     Dosage: 10 MG, 1 IN 1 D, PO 10 MG, 1 IN 1 D, PO 15 MG, DAILY FOR 14 DAYS, OFF 7, PO
     Route: 048
     Dates: start: 20081022, end: 20090407
  3. REVLIMID [Suspect]
     Indication: METASTASIS
     Dosage: 10 MG, 1 IN 1 D, PO 10 MG, 1 IN 1 D, PO 15 MG, DAILY FOR 14 DAYS, OFF 7, PO
     Route: 048
     Dates: start: 20090725, end: 20091012
  4. REVLIMID [Suspect]

REACTIONS (2)
  - NEUTROPHIL COUNT DECREASED [None]
  - RED BLOOD CELL COUNT DECREASED [None]
